FAERS Safety Report 24774190 (Version 1)
Quarter: 2024Q4

REPORT INFORMATION
  Report Type: Report from Study
  Country: GB (occurrence: GB)
  Receive Date: 20241225
  Receipt Date: 20241225
  Transmission Date: 20250115
  Serious: Yes (Hospitalization, Other)
  Sender: BAUSCH AND LOMB
  Company Number: GB-LEO Pharma-376106

PATIENT
  Age: 48 Year
  Sex: Male
  Weight: 73.2 kg

DRUGS (11)
  1. BRODALUMAB [Suspect]
     Active Substance: BRODALUMAB
     Indication: Psoriasis
     Route: 058
     Dates: start: 20201105
  2. SEASONAL FLU VACCINE [Concomitant]
     Indication: Product used for unknown indication
     Dates: start: 20211026, end: 20211026
  3. SEASONAL FLU VACCINE [Concomitant]
     Indication: Product used for unknown indication
     Dates: start: 20221109, end: 20221109
  4. COVID-19 VACCINE (COMIRNATY OMICRON XBB, BIONTECH - PFIZER [Concomitant]
     Indication: Product used for unknown indication
     Dates: start: 20221109, end: 20221109
  5. MODERNA COVID-19 VACCINE [Concomitant]
     Active Substance: ELASOMERAN
     Indication: Product used for unknown indication
     Dates: start: 20220420, end: 20220420
  6. COVID-19 VACCINE (OXFORD/ASTRAZENECA) [Concomitant]
     Indication: Product used for unknown indication
     Dates: start: 20210425, end: 20210425
  7. COVID-19 VACCINE (OXFORD/ASTRAZENECA) [Concomitant]
     Indication: Product used for unknown indication
     Dates: start: 20210214, end: 20210214
  8. COAL TAR\COCONUT OIL\SALICYLIC ACID [Concomitant]
     Active Substance: COAL TAR\COCONUT OIL\SALICYLIC ACID
     Indication: Product used for unknown indication
     Dates: start: 20230310
  9. FOLIC ACID [Concomitant]
     Active Substance: FOLIC ACID
     Indication: Product used for unknown indication
     Dates: start: 20211109
  10. PFIZER-BIONTECH COVID-19 VACCINE [Concomitant]
     Active Substance: TOZINAMERAN
     Indication: Product used for unknown indication
     Dates: start: 20211026, end: 20211026
  11. ENSTILAR [Concomitant]
     Active Substance: BETAMETHASONE DIPROPIONATE\CALCIPOTRIENE HYDRATE
     Indication: Product used for unknown indication
     Dates: start: 20220113

REACTIONS (5)
  - Nephrolithiasis [Recovered/Resolved with Sequelae]
  - Cyanosis [Recovered/Resolved]
  - Hypoxia [Recovered/Resolved]
  - Pneumonia [Recovered/Resolved]
  - Pyelonephritis [Recovered/Resolved]

NARRATIVE: CASE EVENT DATE: 20231021
